FAERS Safety Report 17249909 (Version 1)
Quarter: 2020Q1

REPORT INFORMATION
  Report Type: Other
  Country: BH (occurrence: BH)
  Receive Date: 20200109
  Receipt Date: 20200109
  Transmission Date: 20200409
  Serious: Yes (Life-Threatening, Hospitalization, Other)
  Sender: FDA-Public Use
  Company Number: BH-ATLAS PHARMACEUTICALS, LLC-2078695

PATIENT
  Age: 57 Year
  Sex: Male

DRUGS (2)
  1. AMLODIPINE [Concomitant]
     Active Substance: AMLODIPINE BESYLATE
     Route: 065
  2. METFORMIN [Suspect]
     Active Substance: METFORMIN HYDROCHLORIDE
     Indication: TYPE 2 DIABETES MELLITUS
     Route: 065

REACTIONS (4)
  - Toxicity to various agents [Unknown]
  - Lactic acidosis [Unknown]
  - Somnolence [Unknown]
  - Shock [Unknown]
